FAERS Safety Report 7684762-6 (Version None)
Quarter: 2011Q3

REPORT INFORMATION
  Report Type: 
  Country: None (occurrence: None)
  Receive Date: 20110810
  Receipt Date: 20110801
  Transmission Date: 20111222
  Serious: Yes (Other)
  Sender: FDA-Public Use
  Company Number: DKLU1072353

PATIENT
  Age: 29 Year
  Sex: Female

DRUGS (1)
  1. SABRIL [Suspect]
     Indication: EPILEPSY
     Dosage: 1250 MG, 2 IN 1 D, ORAL
     Route: 048
     Dates: start: 20100701

REACTIONS (1)
  - BLINDNESS [None]
